FAERS Safety Report 8322015-3 (Version None)
Quarter: 2012Q2

REPORT INFORMATION
  Report Type: 
  Country: None (occurrence: None)
  Receive Date: 20120430
  Receipt Date: 20120424
  Transmission Date: 20120825
  Serious: Yes (Disabling)
  Sender: FDA-Public Use
  Company Number: US-ROCHE-1062762

PATIENT
  Sex: Male

DRUGS (2)
  1. ROSIGLITAZONE MALEATE [Suspect]
     Indication: METASTATIC NEOPLASM
     Dosage: DATE OF MOST RECENT DOSE PRIOR TO SAE: 15/MAR/2011
     Route: 048
     Dates: start: 20110308
  2. VISMODEGIB [Suspect]
     Indication: METASTATIC NEOPLASM
     Route: 048
     Dates: start: 20110309

REACTIONS (1)
  - ABDOMINAL PAIN [None]
